FAERS Safety Report 18973405 (Version 1)
Quarter: 2021Q1

REPORT INFORMATION
  Report Type: Spontaneous
  Country: US (occurrence: US)
  Receive Date: 20210304
  Receipt Date: 20210304
  Transmission Date: 20210420
  Serious: No
  Sender: FDA-Public Use
  Company Number: None

PATIENT
  Age: 31 Year
  Sex: Female

DRUGS (1)
  1. OPSUMIT [Suspect]
     Active Substance: MACITENTAN
     Indication: PULMONARY ARTERIAL HYPERTENSION
     Route: 048
     Dates: start: 20200219

REACTIONS (4)
  - Pregnancy test positive [None]
  - Pregnancy with contraceptive device [None]
  - Abdominal pain [None]
  - Abortion induced [None]

NARRATIVE: CASE EVENT DATE: 20210218
